FAERS Safety Report 9105359 (Version 1)
Quarter: 2013Q1

REPORT INFORMATION
  Report Type: Spontaneous
  Country: FR (occurrence: FR)
  Receive Date: 20130220
  Receipt Date: 20130220
  Transmission Date: 20140127
  Serious: Yes (Hospitalization)
  Sender: FDA-Public Use
  Company Number: FR-GLAXOSMITHKLINE-B0867928A

PATIENT
  Age: 27 Year
  Sex: Female

DRUGS (3)
  1. DEROXAT [Suspect]
     Indication: PRODUCT USED FOR UNKNOWN INDICATION
     Route: 048
     Dates: start: 20130125
  2. VALIUM [Suspect]
     Indication: ANXIETY
     Route: 048
     Dates: start: 20130124, end: 20130131
  3. LARGACTIL [Suspect]
     Indication: ANXIETY
     Route: 048
     Dates: start: 20130129

REACTIONS (2)
  - Petit mal epilepsy [Recovered/Resolved]
  - Drug interaction [Unknown]
